FAERS Safety Report 6935772-5 (Version None)
Quarter: 2010Q3

REPORT INFORMATION
  Report Type: 
  Country: None (occurrence: None)
  Receive Date: 20100819
  Receipt Date: 20100819
  Transmission Date: 20110219
  Serious: Yes (Hospitalization)
  Sender: FDA-Public Use
  Company Number: None

PATIENT
  Sex: Male
  Weight: 74 kg

DRUGS (1)
  1. MEMANTINE HCL [Suspect]
     Dosage: 1240 MG

REACTIONS (12)
  - ADRENAL MASS [None]
  - CONDITION AGGRAVATED [None]
  - DEEP VEIN THROMBOSIS [None]
  - DIPLOPIA [None]
  - DIZZINESS [None]
  - EMBOLIC STROKE [None]
  - INFARCTION [None]
  - LUNG NEOPLASM [None]
  - METASTASES TO BONE [None]
  - METASTATIC NEOPLASM [None]
  - REFUSAL OF TREATMENT BY PATIENT [None]
  - TROPONIN INCREASED [None]
